FAERS Safety Report 7936058-2 (Version None)
Quarter: 2011Q4

REPORT INFORMATION
  Report Type: 
  Country: None (occurrence: None)
  Receive Date: 20111123
  Receipt Date: 20111122
  Transmission Date: 20120403
  Serious: Yes (Death, Hospitalization)
  Sender: FDA-Public Use
  Company Number: CH-AMGEN-CHECT2011042332

PATIENT
  Age: 81 Year
  Sex: Female

DRUGS (8)
  1. LUCENTIS [Concomitant]
     Dosage: 0.5 MG, QMO
     Route: 031
     Dates: start: 20090301, end: 20110812
  2. ATACAND [Concomitant]
     Dosage: 16 MG, QD
     Route: 048
     Dates: start: 20090301, end: 20110812
  3. LEVOTHYROXINE SODIUM [Concomitant]
     Dosage: UNK
     Route: 048
     Dates: start: 20071201, end: 20110812
  4. CALCIMAGON D3 [Concomitant]
     Dosage: UNK UNK, TID
     Route: 048
     Dates: start: 20071128, end: 20110812
  5. DENOSUMAB [Suspect]
     Indication: OSTEOPOROSIS POSTMENOPAUSAL
  6. ASPIRIN [Concomitant]
     Dosage: 100 MG, QD
     Route: 048
     Dates: start: 20090301, end: 20110812
  7. ARICEPT [Concomitant]
     Dosage: 5 MG, QD
     Route: 048
     Dates: start: 20070201, end: 20110812
  8. NEXIUM [Concomitant]
     Dosage: 40 MG, QD
     Route: 048
     Dates: start: 20090101, end: 20110812

REACTIONS (3)
  - SOFT TISSUE INFECTION [None]
  - SEPSIS [None]
  - MULTI-ORGAN FAILURE [None]
